FAERS Safety Report 8060366-0 (Version None)
Quarter: 2012Q1

REPORT INFORMATION
  Report Type: 
  Country: None (occurrence: None)
  Receive Date: 20120119
  Receipt Date: 20120119
  Transmission Date: 20120608
  Serious: Yes (Hospitalization)
  Sender: FDA-Public Use
  Company Number: None

PATIENT
  Age: 89 Year
  Sex: Male
  Weight: 68.4 kg

DRUGS (7)
  1. ASPIRIN [Suspect]
     Indication: CORONARY ARTERY DISEASE
     Dosage: 325MG DAILY PO CHRONIC
     Route: 048
  2. DIGOXIN [Concomitant]
  3. XANAX [Concomitant]
  4. LOPRESSOR [Concomitant]
  5. PLAVIX [Suspect]
     Indication: CORONARY ARTERY DISEASE
     Dosage: 75MG DAILY PO CHRONIC
     Route: 048
  6. SIMVASTATIN [Concomitant]
  7. TAMSULOSIN HCL [Concomitant]

REACTIONS (3)
  - UPPER GASTROINTESTINAL HAEMORRHAGE [None]
  - PEPTIC ULCER [None]
  - GASTRIC ULCER HAEMORRHAGE [None]
